FAERS Safety Report 10165229 (Version 1)
Quarter: 2014Q2

REPORT INFORMATION
  Report Type: Spontaneous
  Country: US (occurrence: US)
  Receive Date: 20140510
  Receipt Date: 20140510
  Transmission Date: 20141212
  Serious: No
  Sender: FDA-Public Use
  Company Number: US-BRISTOL-MYERS SQUIBB COMPANY-20340345

PATIENT
  Age: 73 Year
  Sex: Female

DRUGS (4)
  1. BYDUREON [Suspect]
     Indication: TYPE 2 DIABETES MELLITUS
     Route: 058
  2. LIPITOR [Concomitant]
  3. GLUCOPHAGE [Concomitant]
  4. ARICEPT [Concomitant]

REACTIONS (3)
  - Urticaria [Unknown]
  - Injection site rash [Unknown]
  - Throat irritation [Recovered/Resolved]
